FAERS Safety Report 4528323-6 (Version None)
Quarter: 2004Q4

REPORT INFORMATION
  Report Type: 
  Country: None (occurrence: None)
  Receive Date: 20041130
  Receipt Date: 20041007
  Transmission Date: 20050328
  Serious: Yes (Hospitalization)
  Sender: FDA-Public Use
  Company Number: WAES 0410USA01175

PATIENT
  Age: 71 Year
  Sex: Female

DRUGS (1)
  1. ZETIA [Suspect]
     Indication: LOW DENSITY LIPOPROTEIN INCREASED
     Dosage: PO
     Route: 048
     Dates: start: 20040916, end: 20040923

REACTIONS (1)
  - PANCREATITIS [None]
